FAERS Safety Report 5237114-2 (Version None)
Quarter: 2007Q1

REPORT INFORMATION
  Report Type: 
  Country: None (occurrence: None)
  Receive Date: 20070213
  Receipt Date: 20070213
  Transmission Date: 20070707
  Serious: Yes (Other)
  Sender: FDA-Public Use
  Company Number: US-GLAXOSMITHKLINE-A0639149A

PATIENT
  Age: 51 Year
  Sex: Female

DRUGS (1)
  1. SOMINEX [Suspect]
     Indication: DRUG USE FOR UNKNOWN INDICATION
     Route: 065

REACTIONS (3)
  - JOINT DISLOCATION [None]
  - PAIN IN EXTREMITY [None]
  - UNDERDOSE [None]
